FAERS Safety Report 19614057 (Version 1)
Quarter: 2021Q3

REPORT INFORMATION
  Report Type: Spontaneous
  Country: IT (occurrence: IT)
  Receive Date: 20210727
  Receipt Date: 20210727
  Transmission Date: 20211014
  Serious: Yes (Hospitalization)
  Sender: FDA-Public Use
  Company Number: IT-ACCORD-233048

PATIENT
  Age: 67 Year
  Sex: Female
  Weight: 52 kg

DRUGS (1)
  1. DOCETAXEL ACCORD [Suspect]
     Active Substance: DOCETAXEL
     Indication: LUNG NEOPLASM
     Dosage: 20 MG/1 ML
     Route: 042
     Dates: start: 20210404, end: 20210428

REACTIONS (5)
  - Acute respiratory failure [Recovering/Resolving]
  - Respiratory failure [Recovering/Resolving]
  - Confusional state [Recovering/Resolving]
  - Leukocytosis [Recovering/Resolving]
  - Dyspnoea [Recovering/Resolving]

NARRATIVE: CASE EVENT DATE: 20210516
